FAERS Safety Report 8230254-5 (Version None)
Quarter: 2012Q1

REPORT INFORMATION
  Report Type: 
  Country: None (occurrence: None)
  Receive Date: 20120321
  Receipt Date: 20120321
  Transmission Date: 20120608
  Serious: Yes (Death)
  Sender: FDA-Public Use
  Company Number: None

PATIENT
  Age: 72 Year
  Sex: Male
  Weight: 77.2 kg

DRUGS (1)
  1. TRISENOX [Suspect]
     Indication: LUNG NEOPLASM MALIGNANT
     Dosage: TRISENOX  25MG IV
     Route: 042
     Dates: start: 20111116, end: 20120311

REACTIONS (2)
  - FALL [None]
  - CARDIAC ARREST [None]
